FAERS Safety Report 26157458 (Version 1)
Quarter: 2025Q4

REPORT INFORMATION
  Report Type: Spontaneous
  Country: EU (occurrence: EU)
  Receive Date: 20251215
  Receipt Date: 20251215
  Transmission Date: 20260117
  Serious: Yes (Other)
  Sender: MYLAN
  Company Number: None

PATIENT
  Age: 22 Year
  Sex: Male

DRUGS (20)
  1. XANAX [Suspect]
     Active Substance: ALPRAZOLAM
     Indication: Product used for unknown indication
     Dosage: 1.5 MILLIGRAM (1.5 MG PER EPISODE)
     Route: 061
  2. XANAX [Suspect]
     Active Substance: ALPRAZOLAM
     Dosage: 1.5 MILLIGRAM (1.5 MG PER EPISODE)
     Route: 048
  3. XANAX [Suspect]
     Active Substance: ALPRAZOLAM
     Dosage: 1.5 MILLIGRAM (1.5 MG PER EPISODE)
     Route: 048
  4. XANAX [Suspect]
     Active Substance: ALPRAZOLAM
     Dosage: 1.5 MILLIGRAM (1.5 MG PER EPISODE)
     Route: 061
  5. OLANZAPINE [Suspect]
     Active Substance: OLANZAPINE
     Indication: Product used for unknown indication
     Dosage: 7.5 MILLIGRAM (7.5 MG PER EPISODE)
     Route: 061
  6. OLANZAPINE [Suspect]
     Active Substance: OLANZAPINE
     Dosage: 7.5 MILLIGRAM (7.5 MG PER EPISODE)
     Route: 048
  7. OLANZAPINE [Suspect]
     Active Substance: OLANZAPINE
     Dosage: 7.5 MILLIGRAM (7.5 MG PER EPISODE)
     Route: 048
  8. OLANZAPINE [Suspect]
     Active Substance: OLANZAPINE
     Dosage: 7.5 MILLIGRAM (7.5 MG PER EPISODE)
     Route: 061
  9. AMPHETAMINE [Suspect]
     Active Substance: AMPHETAMINE
     Indication: Product used for unknown indication
     Dosage: UNK (1 TO 1.5 G EVERY 2 DAYS)
     Route: 061
  10. AMPHETAMINE [Suspect]
     Active Substance: AMPHETAMINE
     Dosage: UNK (1 TO 1.5 G EVERY 2 DAYS)
     Route: 048
  11. AMPHETAMINE [Suspect]
     Active Substance: AMPHETAMINE
     Dosage: UNK (1 TO 1.5 G EVERY 2 DAYS)
     Route: 048
  12. AMPHETAMINE [Suspect]
     Active Substance: AMPHETAMINE
     Dosage: UNK (1 TO 1.5 G EVERY 2 DAYS)
     Route: 061
  13. METHYLPHENIDATE HYDROCHLORIDE [Suspect]
     Active Substance: METHYLPHENIDATE HYDROCHLORIDE
     Indication: Product used for unknown indication
     Dosage: 60 MILLIGRAM (60 MG PER EPISODE)
     Route: 061
  14. METHYLPHENIDATE HYDROCHLORIDE [Suspect]
     Active Substance: METHYLPHENIDATE HYDROCHLORIDE
     Dosage: 60 MILLIGRAM (60 MG PER EPISODE)
     Route: 048
  15. METHYLPHENIDATE HYDROCHLORIDE [Suspect]
     Active Substance: METHYLPHENIDATE HYDROCHLORIDE
     Dosage: 60 MILLIGRAM (60 MG PER EPISODE)
     Route: 048
  16. METHYLPHENIDATE HYDROCHLORIDE [Suspect]
     Active Substance: METHYLPHENIDATE HYDROCHLORIDE
     Dosage: 60 MILLIGRAM (60 MG PER EPISODE)
     Route: 061
  17. COCAINE [Suspect]
     Active Substance: COCAINE
     Indication: Product used for unknown indication
     Dosage: UNK (1 TRACE PER EPISODE)
  18. COCAINE [Suspect]
     Active Substance: COCAINE
     Dosage: UNK (1 TRACE PER EPISODE)
     Route: 045
  19. COCAINE [Suspect]
     Active Substance: COCAINE
     Dosage: UNK (1 TRACE PER EPISODE)
     Route: 045
  20. COCAINE [Suspect]
     Active Substance: COCAINE
     Dosage: UNK (1 TRACE PER EPISODE)

REACTIONS (2)
  - Substance use disorder [Not Recovered/Not Resolved]
  - Poisoning [Recovered/Resolved]

NARRATIVE: CASE EVENT DATE: 20251125
